FAERS Safety Report 7649141-6 (Version None)
Quarter: 2011Q3

REPORT INFORMATION
  Report Type: 
  Country: None (occurrence: None)
  Receive Date: 20110802
  Receipt Date: 20110724
  Transmission Date: 20111222
  Serious: No
  Sender: FDA-Public Use
  Company Number: US-JNJFOC-20110710593

PATIENT
  Age: 6 Decade
  Sex: Male

DRUGS (2)
  1. DURAGESIC-100 [Suspect]
     Indication: PAIN
     Dosage: (NDC#50458-094-55)
     Route: 062
     Dates: start: 20110720
  2. FENTANYL-100 [Suspect]
     Indication: PAIN
     Dosage: NDC UNKNOWN
     Route: 062
     Dates: start: 20110626, end: 20110720

REACTIONS (3)
  - INCORRECT DOSE ADMINISTERED [None]
  - PRODUCT ADHESION ISSUE [None]
  - DRUG INEFFECTIVE [None]
